FAERS Safety Report 17907969 (Version 2)
Quarter: 2020Q2

REPORT INFORMATION
  Report Type: Spontaneous
  Country: GB (occurrence: GB)
  Receive Date: 20200617
  Receipt Date: 20200619
  Transmission Date: 20200714
  Serious: Yes (Other)
  Sender: FDA-Public Use
  Company Number: GB-PFIZER INC-2020230606

PATIENT
  Age: 32 Year
  Sex: Male

DRUGS (2)
  1. ROCURONIUM [Suspect]
     Active Substance: ROCURONIUM BROMIDE
     Indication: NEUROMUSCULAR BLOCKADE
     Dosage: UNK (MULTIPLE OCCASIONS BOLUS DOSES)
  2. ATRACURIUM BESILATE [Suspect]
     Active Substance: ATRACURIUM BESYLATE
     Indication: NEUROMUSCULAR BLOCKADE
     Dosage: UNK (MULTIPLE OCCASIONS BOLUS DOSES)

REACTIONS (3)
  - Tachycardia [Unknown]
  - Hypertension [Unknown]
  - Hyperhidrosis [Unknown]
